FAERS Safety Report 7450156-1 (Version None)
Quarter: 2011Q2

REPORT INFORMATION
  Report Type: 
  Country: None (occurrence: None)
  Receive Date: 20110428
  Receipt Date: 20110428
  Transmission Date: 20111010
  Serious: Yes (Other)
  Sender: FDA-Public Use
  Company Number: None

PATIENT
  Age: 65 Year
  Sex: Female
  Weight: 86.1834 kg

DRUGS (1)
  1. CLONIDINE [Suspect]
     Indication: HYPERTENSION
     Dosage: 1 AS NEEDED PO
     Route: 048
     Dates: start: 20110317, end: 20110427

REACTIONS (3)
  - MALAISE [None]
  - CHEST PAIN [None]
  - PRODUCT QUALITY ISSUE [None]
